FAERS Safety Report 13145716 (Version 1)
Quarter: 2017Q1

REPORT INFORMATION
  Report Type: Spontaneous
  Country: US (occurrence: US)
  Receive Date: 20170124
  Receipt Date: 20170124
  Transmission Date: 20170428
  Serious: Yes (Hospitalization)
  Sender: FDA-Public Use
  Company Number: US-RELYPSA-RLY2017000185

PATIENT
  Sex: Male

DRUGS (16)
  1. ASPIRIN. [Concomitant]
     Active Substance: ASPIRIN
  2. FAMOTIDINE. [Concomitant]
     Active Substance: FAMOTIDINE
  3. NAPROXEN SODIUM. [Concomitant]
     Active Substance: NAPROXEN SODIUM
  4. MINOXIDIL. [Concomitant]
     Active Substance: MINOXIDIL
  5. MIRALAX [Concomitant]
     Active Substance: POLYETHYLENE GLYCOL 3350
  6. LISINOPRIL. [Concomitant]
     Active Substance: LISINOPRIL
  7. MILK OF MAGNESIA [Concomitant]
     Active Substance: MAGNESIUM HYDROXIDE
  8. ISOSORBIDE DINITRATE. [Concomitant]
     Active Substance: ISOSORBIDE DINITRATE
  9. RENVELA [Concomitant]
     Active Substance: SEVELAMER CARBONATE
  10. NITROSTAT [Concomitant]
     Active Substance: NITROGLYCERIN
  11. VELTASSA [Suspect]
     Active Substance: PATIROMER
     Indication: HYPERKALAEMIA
     Dosage: 8.4 G, QD
     Route: 048
     Dates: start: 20161111
  12. RANEXA [Concomitant]
     Active Substance: RANOLAZINE
  13. COREG [Concomitant]
     Active Substance: CARVEDILOL
  14. KEPPRA [Concomitant]
     Active Substance: LEVETIRACETAM
  15. NORVASC [Concomitant]
     Active Substance: AMLODIPINE BESYLATE
  16. MS CONTIN [Concomitant]
     Active Substance: MORPHINE SULFATE

REACTIONS (1)
  - Urosepsis [Unknown]
